FAERS Safety Report 9822383 (Version 3)
Quarter: 2015Q4

REPORT INFORMATION
  Report Type: Report from Study
  Country: JP (occurrence: JP)
  Receive Date: 20140116
  Receipt Date: 20151119
  Transmission Date: 20160305
  Serious: Yes (Hospitalization, Other)
  Sender: FDA-Public Use
  Company Number: JP-009507513-1305JPN004055

PATIENT
  Age: 38 Year
  Sex: Female
  Weight: 40 kg

DRUGS (17)
  1. TEMOZOLOMIDE. [Suspect]
     Active Substance: TEMOZOLOMIDE
     Dosage: 200 MG/M2, QD
     Route: 048
     Dates: start: 20070516, end: 20070520
  2. TEMOZOLOMIDE. [Suspect]
     Active Substance: TEMOZOLOMIDE
     Dosage: 200 MG/M2, QD
     Route: 048
     Dates: start: 20070613, end: 20070617
  3. TEMOZOLOMIDE. [Suspect]
     Active Substance: TEMOZOLOMIDE
     Dosage: 200 MG/M2, QD
     Route: 048
     Dates: start: 20070711, end: 20070715
  4. DEPAKENE [Concomitant]
     Active Substance: VALPROIC ACID
     Dosage: DAILY DOSAGE UNKNOWN, FORMULATION: POR
     Route: 048
  5. TEMOZOLOMIDE. [Suspect]
     Active Substance: TEMOZOLOMIDE
     Dosage: 200 MG/M2, QD
     Route: 048
     Dates: start: 20070222, end: 20070226
  6. TEMOZOLOMIDE. [Suspect]
     Active Substance: TEMOZOLOMIDE
     Dosage: 200 MG/M2, QD
     Route: 048
     Dates: start: 20070808, end: 20070812
  7. GABAPEN [Suspect]
     Active Substance: GABAPENTIN
     Indication: EPILEPSY
  8. NAVBANO [Concomitant]
     Indication: PROPHYLAXIS
     Dosage: DAILY DOSAGE UNKNOWN
     Route: 048
     Dates: start: 20061130, end: 20080210
  9. TEMOZOLOMIDE. [Suspect]
     Active Substance: TEMOZOLOMIDE
     Dosage: 200 MG/M2, QD
     Route: 048
     Dates: start: 20070322, end: 20070326
  10. MUCOSTA [Concomitant]
     Active Substance: REBAMIPIDE
     Dosage: DAILY DOSAGE UNKNOWN, FORMULATION: POR
     Route: 048
  11. TEMOZOLOMIDE. [Suspect]
     Active Substance: TEMOZOLOMIDE
     Dosage: 200 MG/M2, QD
     Route: 048
     Dates: start: 20061228, end: 20070101
  12. LAXOBERON [Concomitant]
     Active Substance: SODIUM PICOSULFATE
     Indication: PROPHYLAXIS
     Dosage: DAILY DOSAGE UNKNOWN, FORMULATION: POR
     Route: 048
     Dates: start: 20061204
  13. TEMOZOLOMIDE. [Suspect]
     Active Substance: TEMOZOLOMIDE
     Indication: GLIOBLASTOMA MULTIFORME
     Dosage: 150 MG/M2, QD
     Route: 048
     Dates: start: 20061130, end: 20061204
  14. TEMOZOLOMIDE. [Suspect]
     Active Substance: TEMOZOLOMIDE
     Dosage: 200 MG/M2, QD
     Route: 048
     Dates: start: 20080109, end: 20080113
  15. TEMOZOLOMIDE. [Suspect]
     Active Substance: TEMOZOLOMIDE
     Dosage: 200 MG/M2, QD
     Route: 048
     Dates: start: 20080206, end: 20080210
  16. TEMOZOLOMIDE. [Suspect]
     Active Substance: TEMOZOLOMIDE
     Dosage: 200 MG/M2, QD
     Route: 048
     Dates: start: 20070125, end: 20070129
  17. EXCEGRAN [Concomitant]
     Active Substance: ZONISAMIDE
     Dosage: DOSAGE TEXT: DAILY DOSAGE UNKNOWN, FORMULATION: POR
     Route: 048

REACTIONS (7)
  - Cervix carcinoma [Unknown]
  - Bone marrow failure [Recovered/Resolved]
  - Neutrophil count decreased [Recovered/Resolved]
  - Epilepsy [Recovered/Resolved]
  - Anaemia [Recovered/Resolved]
  - Malaise [Recovered/Resolved]
  - Lymphocyte count decreased [Recovered/Resolved]

NARRATIVE: CASE EVENT DATE: 20061227
